FAERS Safety Report 6408119-0 (Version None)
Quarter: 2009Q4

REPORT INFORMATION
  Report Type: 
  Country: None (occurrence: None)
  Receive Date: 20091016
  Receipt Date: 20091001
  Transmission Date: 20100525
  Serious: Yes (Death, Other)
  Sender: FDA-Public Use
  Company Number: 2009BI032032

PATIENT

DRUGS (5)
  1. ZEVALIN [Suspect]
     Indication: NON-HODGKIN'S LYMPHOMA
     Dosage: 28 MCI,1X
     Dates: start: 20030515, end: 20030515
  2. RITUXIMAB [Concomitant]
  3. FLUDARABINE [Concomitant]
  4. MITOXANTRONE [Concomitant]
  5. DEXAMETHASONE [Concomitant]

REACTIONS (2)
  - ACUTE MYELOID LEUKAEMIA [None]
  - MYELODYSPLASTIC SYNDROME [None]
